FAERS Safety Report 15589979 (Version 4)
Quarter: 2019Q2

REPORT INFORMATION
  Report Type: Report from Study
  Country: US (occurrence: US)
  Receive Date: 20181106
  Receipt Date: 20190501
  Transmission Date: 20190711
  Serious: Yes (Hospitalization, Other)
  Sender: FDA-Public Use
  Company Number: US-TESARO-2018-TSO1405-US

PATIENT
  Sex: Female

DRUGS (1)
  1. ZEJULA [Suspect]
     Active Substance: NIRAPARIB
     Indication: OVARIAN CANCER
     Dosage: 100 MG, QAM
     Route: 048
     Dates: start: 20180122

REACTIONS (5)
  - Postoperative wound infection [Unknown]
  - Hepatic neoplasm [Unknown]
  - Abdominal distension [Recovered/Resolved]
  - Underdose [Unknown]
  - Tooth extraction [Unknown]

NARRATIVE: CASE EVENT DATE: 2018
